FAERS Safety Report 23016093 (Version 2)
Quarter: 2024Q3

REPORT INFORMATION
  Report Type: Spontaneous
  Country: JP (occurrence: JP)
  Receive Date: 20231002
  Receipt Date: 20240712
  Transmission Date: 20241016
  Serious: Yes (Death, Other)
  Sender: GLAXOSMITHKLINE
  Company Number: JP-GSK-JP2023JPN133273AA

PATIENT

DRUGS (8)
  1. EPIVIR [Suspect]
     Active Substance: LAMIVUDINE
     Indication: HIV infection
     Dosage: UNK
  2. RETROVIR [Suspect]
     Active Substance: ZIDOVUDINE
     Indication: HIV infection
     Dosage: UNK
     Dates: start: 1996
  3. NELFINAVIR MESYLATE [Suspect]
     Active Substance: NELFINAVIR MESYLATE
     Indication: HIV infection
     Dosage: UNK
  4. VIREAD [Suspect]
     Active Substance: TENOFOVIR DISOPROXIL FUMARATE
     Indication: HIV infection
     Dosage: UNK
  5. DIDANOSINE [Concomitant]
     Active Substance: DIDANOSINE
     Indication: HIV infection
     Dosage: UNK
     Dates: start: 1996
  6. STAVUDINE [Concomitant]
     Active Substance: STAVUDINE
     Indication: HIV infection
     Dosage: UNK
  7. NORVIR [Concomitant]
     Active Substance: RITONAVIR
     Indication: HIV infection
     Dosage: UNK
  8. INDINAVIR SULFATE [Concomitant]
     Active Substance: INDINAVIR SULFATE
     Indication: HIV infection
     Dosage: UNK

REACTIONS (3)
  - Moyamoya disease [Fatal]
  - Cerebral haemorrhage [Fatal]
  - Physical deconditioning [Fatal]
